FAERS Safety Report 13052408 (Version 1)
Quarter: 2016Q4

REPORT INFORMATION
  Report Type: Report from Study
  Country: None (occurrence: MX)
  Receive Date: 20161221
  Receipt Date: 20161221
  Transmission Date: 20170207
  Serious: Yes (Death, Hospitalization)
  Sender: FDA-Public Use
  Company Number: MX-ABBVIE-16P-107-1817763-00

PATIENT
  Sex: Female

DRUGS (1)
  1. VIEKIRA PAK [Suspect]
     Active Substance: DASABUVIR\OMBITASVIR\PARITAPREVIR\RITONAVIR
     Indication: CHRONIC HEPATITIS C
     Route: 048
     Dates: start: 20151213

REACTIONS (18)
  - Pneumonia [Unknown]
  - Depressed level of consciousness [Unknown]
  - Upper gastrointestinal haemorrhage [Unknown]
  - Hepatic failure [Fatal]
  - Hepatic cirrhosis [Fatal]
  - Hypoglycaemia [Unknown]
  - Ketoacidosis [Unknown]
  - Hepatic encephalopathy [Unknown]
  - Hepatic failure [Unknown]
  - Acid base balance abnormal [Unknown]
  - Asthenia [Unknown]
  - Hypersplenism [Unknown]
  - Urosepsis [Fatal]
  - Thrombocytopenia [Unknown]
  - Acute hepatitis C [Fatal]
  - Sepsis [Fatal]
  - Peritonitis [Unknown]
  - Starvation [Unknown]
